FAERS Safety Report 24771215 (Version 1)
Quarter: 2024Q4

REPORT INFORMATION
  Report Type: Spontaneous
  Country: JP (occurrence: JP)
  Receive Date: 20241224
  Receipt Date: 20241224
  Transmission Date: 20250114
  Serious: Yes (Other)
  Sender: AMGEN
  Company Number: JP-AMGEN-JPNSP2024250373

PATIENT

DRUGS (2)
  1. ROMOSOZUMAB [Suspect]
     Active Substance: ROMOSOZUMAB
     Indication: Spinal fracture
     Dosage: UNK
     Route: 065
  2. ROMOSOZUMAB [Suspect]
     Active Substance: ROMOSOZUMAB
     Indication: Osteoporosis

REACTIONS (1)
  - Spinal fracture [Unknown]
